FAERS Safety Report 18282793 (Version 1)
Quarter: 2020Q3

REPORT INFORMATION
  Report Type: Spontaneous
  Country: US (occurrence: US)
  Receive Date: 20200918
  Receipt Date: 20200918
  Transmission Date: 20201103
  Serious: No
  Sender: FDA-Public Use
  Company Number: US-PFIZER INC-2020357634

PATIENT
  Age: 56 Year
  Sex: Female
  Weight: 71.21 kg

DRUGS (1)
  1. EUCRISA [Suspect]
     Active Substance: CRISABOROLE
     Indication: ECZEMA
     Dosage: UNK
     Route: 061
     Dates: start: 202007

REACTIONS (2)
  - Burning sensation [Recovered/Resolved]
  - Application site pain [Recovered/Resolved]
